FAERS Safety Report 6434346-2 (Version None)
Quarter: 2009Q4

REPORT INFORMATION
  Report Type: 
  Country: None (occurrence: None)
  Receive Date: 20091110
  Receipt Date: 20081021
  Transmission Date: 20100525
  Serious: No
  Sender: FDA-Public Use
  Company Number: US-ASTRAZENECA-2009UW15851

PATIENT
  Age: 72 Year
  Sex: Female

DRUGS (4)
  1. PRILOSEC OTC [Suspect]
     Dosage: 1 TABLET, 1 /DAY FOR 4 DAYS
     Route: 048
     Dates: start: 20081014, end: 20081017
  2. DIFLUCAN [Concomitant]
     Dosage: UNKNOWN
  3. DOXYCYCLINE [Concomitant]
     Dosage: UNKNOWN
     Route: 048
  4. COUMADIN [Concomitant]
     Dosage: UNKNOWN

REACTIONS (2)
  - LABELLED DRUG-DRUG INTERACTION MEDICATION ERROR [None]
  - MICTURITION URGENCY [None]
